FAERS Safety Report 13708585 (Version 1)
Quarter: 2017Q2

REPORT INFORMATION
  Report Type: Spontaneous
  Country: US (occurrence: US)
  Receive Date: 20170630
  Receipt Date: 20170630
  Transmission Date: 20170830
  Serious: Yes (Hospitalization)
  Sender: FDA-Public Use
  Company Number: US-BAUSCH-BL-2017-020342

PATIENT
  Age: 58 Year
  Sex: Female

DRUGS (3)
  1. DILTIAZEM ER [Suspect]
     Active Substance: DILTIAZEM
     Indication: HYPERTENSION
     Route: 048
     Dates: start: 2007
  2. LISINOPRIL. [Interacting]
     Active Substance: LISINOPRIL
     Indication: HYPERTENSION
     Route: 048
     Dates: start: 2010
  3. ALBUTEROL. [Concomitant]
     Active Substance: ALBUTEROL
     Indication: ASTHMA
     Dosage: SEVERAL YEARS AGO
     Route: 048

REACTIONS (6)
  - Skin discolouration [Not Recovered/Not Resolved]
  - Alopecia [Not Recovered/Not Resolved]
  - Abdominal pain upper [Unknown]
  - Loss of consciousness [Unknown]
  - Drug interaction [Recovered/Resolved]
  - Blood pressure decreased [Not Recovered/Not Resolved]

NARRATIVE: CASE EVENT DATE: 201606
